FAERS Safety Report 6022137-6 (Version None)
Quarter: 2008Q4

REPORT INFORMATION
  Report Type: 
  Country: None (occurrence: None)
  Receive Date: 20081223
  Receipt Date: 20081211
  Transmission Date: 20090506
  Serious: Yes (Other)
  Sender: FDA-Public Use
  Company Number: 20085722

PATIENT
  Sex: Male

DRUGS (1)
  1. LIORESAL [Suspect]
     Indication: MUSCLE SPASTICITY
     Dosage: DAILY, INTRATHECAL
     Route: 037

REACTIONS (6)
  - DEVICE RELATED INFECTION [None]
  - DISEASE RECURRENCE [None]
  - MUSCLE SPASTICITY [None]
  - POCKET EROSION [None]
  - STAPHYLOCOCCAL INFECTION [None]
  - WITHDRAWAL SYNDROME [None]
